FAERS Safety Report 6933999-X (Version None)
Quarter: 2010Q3

REPORT INFORMATION
  Report Type: 
  Country: None (occurrence: None)
  Receive Date: 20100820
  Receipt Date: 20100811
  Transmission Date: 20110219
  Serious: Yes (Other)
  Sender: FDA-Public Use
  Company Number: FR-JNJFOC-20100804882

PATIENT
  Sex: Female

DRUGS (1)
  1. IXPRIM [Suspect]
     Indication: BACK PAIN
     Route: 048

REACTIONS (8)
  - DIZZINESS [None]
  - DRY MOUTH [None]
  - DYSPNOEA [None]
  - INAPPROPRIATE SCHEDULE OF DRUG ADMINISTRATION [None]
  - NAUSEA [None]
  - OVERDOSE [None]
  - PALPITATIONS [None]
  - PHARYNGEAL OEDEMA [None]
